FAERS Safety Report 24178970 (Version 2)
Quarter: 2024Q3

REPORT INFORMATION
  Report Type: Spontaneous
  Country: US (occurrence: US)
  Receive Date: 20240806
  Receipt Date: 20240821
  Transmission Date: 20241016
  Serious: Yes (Other)
  Sender: RANBAXY
  Company Number: US-SUN PHARMACEUTICAL INDUSTRIES LTD-2024R1-460523

PATIENT
  Age: 39 Year
  Sex: Female

DRUGS (1)
  1. SODIUM NITROPRUSSIDE [Suspect]
     Active Substance: SODIUM NITROPRUSSIDE
     Indication: Papilloedema
     Dosage: UNK
     Route: 065

REACTIONS (1)
  - Condition aggravated [Unknown]
